FAERS Safety Report 5418963-4 (Version None)
Quarter: 2007Q3

REPORT INFORMATION
  Report Type: 
  Country: None (occurrence: None)
  Receive Date: 20070817
  Receipt Date: 20070806
  Transmission Date: 20080115
  Serious: Yes (Other)
  Sender: FDA-Public Use
  Company Number: US-PFIZER INC-2007066157

PATIENT
  Sex: Female
  Weight: 75 kg

DRUGS (12)
  1. CHANTIX [Suspect]
     Indication: SMOKING CESSATION THERAPY
  2. ADVAIR DISKUS 100/50 [Concomitant]
  3. NASACORT [Concomitant]
  4. MONTELUKAST SODIUM [Concomitant]
  5. SALBUTAMOL [Concomitant]
  6. ASPIRIN [Concomitant]
  7. MACROGOL [Concomitant]
  8. GAVISCON [Concomitant]
  9. PREMARIN [Concomitant]
  10. ASCORBIC ACID [Concomitant]
  11. CALCIUM WITH VITAMIN D [Concomitant]
  12. VITAMIN CAP [Concomitant]

REACTIONS (2)
  - DISABILITY [None]
  - DISTRACTIBILITY [None]
